FAERS Safety Report 10377552 (Version 1)
Quarter: 2014Q1

REPORT INFORMATION
  Report Type: Spontaneous
  Country: US (occurrence: None)
  Receive Date: 20140306
  Receipt Date: 20140306
  Transmission Date: 20141002
  Serious: Yes (Hospitalization)
  Sender: FDA-Public Use
  Company Number: 163-21880-13014023

PATIENT
  Age: 64 Year
  Sex: Male
  Weight: 83.92 kg

DRUGS (6)
  1. REVLIMID (LENALIDOMIDE) (10 MILLIGRAM, CAPSULES) [Suspect]
     Indication: PLASMA CELL MYELOMA
     Route: 048
     Dates: start: 20121130
  2. COMPLEX (BECOSYM FORTE) [Concomitant]
  3. COLLACE (DOCUSATE SODIUM) [Concomitant]
  4. NEURONTIN (GABAPENTIN) [Concomitant]
  5. OXYCONTIN (OXYCODONE HYDROCHLORIDE) [Concomitant]
  6. PERCOCET (OXYCOCET) [Concomitant]

REACTIONS (1)
  - Pneumonia [None]
